FAERS Safety Report 4333831-7 (Version None)
Quarter: 2004Q2

REPORT INFORMATION
  Report Type: 
  Country: None (occurrence: None)
  Receive Date: 20040402
  Receipt Date: 20040323
  Transmission Date: 20050107
  Serious: Yes (Hospitalization)
  Sender: FDA-Public Use
  Company Number: 2004020657

PATIENT
  Age: 22 Year
  Sex: Male

DRUGS (3)
  1. GEODON [Suspect]
     Indication: BIPOLAR DISORDER
  2. VALPROATE SODIUM [Suspect]
     Indication: ILL-DEFINED DISORDER
  3. ALL OTHER THERAPEUTIC PRODUCTS [Suspect]
     Indication: ILL-DEFINED DISORDER

REACTIONS (2)
  - HYPERAMMONAEMIA [None]
  - PSYCHOTIC DISORDER [None]
